FAERS Safety Report 7342313-X (Version None)
Quarter: 2011Q1

REPORT INFORMATION
  Report Type: 
  Country: None (occurrence: None)
  Receive Date: 20110310
  Receipt Date: 20110228
  Transmission Date: 20110831
  Serious: No
  Sender: FDA-Public Use
  Company Number: US-BIOGENIDEC-2011BI007284

PATIENT
  Age: 58 Year
  Sex: Female

DRUGS (1)
  1. TYSABRI [Suspect]
     Indication: MULTIPLE SCLEROSIS
     Route: 042
     Dates: start: 20101118

REACTIONS (5)
  - RENAL FUNCTION TEST ABNORMAL [None]
  - BLOOD PHOSPHORUS INCREASED [None]
  - BLOOD UREA NITROGEN/CREATININE RATIO INCREASED [None]
  - BLOOD UREA INCREASED [None]
  - THYROID FUNCTION TEST ABNORMAL [None]
